FAERS Safety Report 10259018 (Version 2)
Quarter: 2014Q2

REPORT INFORMATION
  Report Type: Spontaneous
  Country: US (occurrence: US)
  Receive Date: 20140625
  Receipt Date: 20140625
  Transmission Date: 20141212
  Serious: No
  Sender: FDA-Public Use
  Company Number: US-ASTELLAS-2013US011215

PATIENT
  Age: 85 Year
  Sex: Female

DRUGS (9)
  1. VESICARE [Suspect]
     Indication: INCONTINENCE
     Route: 048
     Dates: start: 20130708, end: 20131119
  2. BENICAR [Concomitant]
     Indication: HYPERTENSION
     Route: 048
     Dates: start: 20120523
  3. CALCIUM 500+D [Concomitant]
     Indication: PRODUCT USED FOR UNKNOWN INDICATION
     Dosage: 500-400 MG
     Route: 048
     Dates: start: 20130708
  4. FLUTICASONE PROPIONATE [Concomitant]
     Indication: PRODUCT USED FOR UNKNOWN INDICATION
     Dates: start: 20120813
  5. LEVOTHYROXINE SODIUM [Concomitant]
     Indication: PRODUCT USED FOR UNKNOWN INDICATION
     Route: 048
     Dates: start: 20121017
  6. LYRICA [Concomitant]
     Indication: NEUROPATHY PERIPHERAL
     Route: 048
     Dates: start: 20111228
  7. NEXIUM                             /01479302/ [Concomitant]
     Indication: PRODUCT USED FOR UNKNOWN INDICATION
     Route: 048
     Dates: start: 20120208
  8. VITAMIN B12 AND FOLIC ACID [Concomitant]
     Indication: PRODUCT USED FOR UNKNOWN INDICATION
     Route: 065
     Dates: start: 20130708
  9. RECLAST [Concomitant]
     Indication: OSTEOPOROSIS
     Route: 065

REACTIONS (8)
  - Eye disorder [Not Recovered/Not Resolved]
  - Lacrimation increased [Unknown]
  - Bursitis [Unknown]
  - Ocular hyperaemia [Not Recovered/Not Resolved]
  - Seborrhoeic keratosis [Unknown]
  - Eye inflammation [Unknown]
  - Dry mouth [Not Recovered/Not Resolved]
  - Dry eye [Not Recovered/Not Resolved]
